FAERS Safety Report 23712663 (Version 1)
Quarter: 2024Q2

REPORT INFORMATION
  Report Type: Spontaneous
  Country: CN (occurrence: CN)
  Receive Date: 20240405
  Receipt Date: 20240405
  Transmission Date: 20240716
  Serious: Yes (Other)
  Sender: FDA-Public Use
  Company Number: CN-BEH-2024170286

PATIENT
  Age: 77 Year
  Sex: Female
  Weight: 45 kg

DRUGS (4)
  1. ALBURX [Suspect]
     Active Substance: ALBUMIN HUMAN
     Indication: Brain herniation
     Dosage: 10 G, OD
     Route: 041
     Dates: start: 20240313, end: 20240317
  2. ALBURX [Suspect]
     Active Substance: ALBUMIN HUMAN
     Indication: Supplementation therapy
  3. FUROSEMIDE [Suspect]
     Active Substance: FUROSEMIDE
     Indication: Brain herniation
     Dosage: 20 MG, OD
     Route: 042
     Dates: start: 20240313, end: 20240317
  4. FUROSEMIDE [Suspect]
     Active Substance: FUROSEMIDE
     Indication: Polyuria

REACTIONS (2)
  - Liver injury [Recovering/Resolving]
  - Transaminases increased [Recovering/Resolving]

NARRATIVE: CASE EVENT DATE: 20240313
